FAERS Safety Report 6760741-8 (Version None)
Quarter: 2010Q2

REPORT INFORMATION
  Report Type: 
  Country: None (occurrence: None)
  Receive Date: 20100608
  Receipt Date: 20100603
  Transmission Date: 20101027
  Serious: Yes (Hospitalization)
  Sender: FDA-Public Use
  Company Number: FR-EISAI INC.-E3810-03847-SPO-FR

PATIENT
  Sex: Male

DRUGS (5)
  1. PARIET (RABEPRAZOLE) [Suspect]
     Dosage: UNKNOWN
     Route: 048
  2. EXOMUC [Suspect]
     Indication: INFLUENZA
     Route: 048
  3. POLERY ADULTE [Suspect]
     Indication: INFLUENZA
     Route: 048
  4. AERIUS [Suspect]
     Indication: INFLUENZA
     Route: 048
  5. TRIMEBUTINE [Suspect]
     Indication: INTESTINAL FUNCTIONAL DISORDER
     Route: 048

REACTIONS (2)
  - CHOLESTASIS [None]
  - CYTOLYTIC HEPATITIS [None]
